FAERS Safety Report 10484650 (Version 2)
Quarter: 2014Q4

REPORT INFORMATION
  Report Type: Spontaneous
  Country: US (occurrence: US)
  Receive Date: 20140930
  Receipt Date: 20141003
  Transmission Date: 20150528
  Serious: Yes (Life-Threatening, Other)
  Sender: FDA-Public Use
  Company Number: CHPA2014US013007

PATIENT
  Age: 58 Year
  Sex: Female

DRUGS (1)
  1. EXCEDRIN MIGRAINE [Suspect]
     Active Substance: ACETAMINOPHEN\ASPIRIN\CAFFEINE
     Indication: MIGRAINE
     Dosage: UNK
     Route: 048
     Dates: end: 2009

REACTIONS (5)
  - Incorrect dose administered [Unknown]
  - Obsessive-compulsive disorder [Unknown]
  - Therapeutic response decreased [Unknown]
  - Amnesia [Unknown]
  - Subarachnoid haemorrhage [Unknown]
